FAERS Safety Report 8924533 (Version 2)
Quarter: 2013Q4

REPORT INFORMATION
  Report Type: Report from Study
  Country: CZ (occurrence: US)
  Receive Date: 20121126
  Receipt Date: 20131207
  Transmission Date: 20140711
  Serious: Yes (Hospitalization)
  Sender: FDA-Public Use
  Company Number: CZ-ASTRAZENECA-2012SE84194

PATIENT
  Age: 68 Year
  Sex: Male
  Weight: 85 kg

DRUGS (24)
  1. MEROPENEM [Suspect]
     Indication: ABDOMINAL INFECTION
     Dosage: 1000 MG
     Route: 042
     Dates: start: 20121024, end: 20121101
  2. SOL. CASTELLANI [Concomitant]
     Dosage: 1 APP
     Dates: start: 20121102, end: 20121106
  3. IMAZOL CRM [Concomitant]
     Dosage: 1 APP
     Dates: start: 20121102, end: 20121106
  4. ZINC PASTE [Concomitant]
     Dosage: 1 APPLICATION AS NEEDED
     Route: 003
     Dates: start: 20121101, end: 20121101
  5. NITROUS OXIDE [Concomitant]
     Dosage: 0.5 INH
     Dates: start: 20121024, end: 20121024
  6. ISOFLURANE [Concomitant]
     Dosage: 1 INH
     Dates: start: 20121024, end: 20121024
  7. DITHIADEN [Concomitant]
     Route: 048
     Dates: start: 20121101, end: 20121106
  8. DITHIADEN [Concomitant]
     Route: 030
     Dates: start: 20121101, end: 20121105
  9. DOLSIN [Concomitant]
     Dates: start: 20121025, end: 20121027
  10. DOLSIN [Concomitant]
     Dates: start: 20121024, end: 20121024
  11. FRAXIPARIN [Concomitant]
     Indication: PROPHYLAXIS
     Dates: start: 20121025, end: 20121106
  12. TISERCIN [Concomitant]
     Dates: start: 20121027, end: 20121027
  13. TIAPRIDAL [Concomitant]
     Dates: start: 20121027, end: 20121030
  14. PARACETAMOL KABI [Concomitant]
     Dates: start: 20121028, end: 20121028
  15. AMLODIPIN [Concomitant]
     Dates: start: 20121101
  16. TAMSULOSIN [Concomitant]
     Dates: start: 20121101
  17. SOLUMEDROL [Concomitant]
     Route: 030
     Dates: start: 20121101, end: 20121103
  18. ANOPYRIN [Concomitant]
     Indication: PROPHYLAXIS
     Dates: start: 20121101
  19. ESMERON [Concomitant]
     Dates: start: 20121024, end: 20121024
  20. PROPOFOL [Concomitant]
     Dates: start: 20121024, end: 20121024
  21. SUFENTA [Concomitant]
     Dates: start: 20121024, end: 20121024
  22. AMOKSIKLAV [Concomitant]
     Dates: start: 20121024, end: 20121024
  23. DORMICUM [Concomitant]
     Dates: start: 20121024, end: 20121024
  24. SUCCINYLCHOLINJODID [Concomitant]
     Dates: start: 20121024, end: 20121024

REACTIONS (1)
  - Drug eruption [Recovered/Resolved]
